FAERS Safety Report 5155352-4 (Version None)
Quarter: 2006Q4

REPORT INFORMATION
  Report Type: 
  Country: None (occurrence: None)
  Receive Date: 20061121
  Receipt Date: 20041201
  Transmission Date: 20070319
  Serious: Yes (Life-Threatening, Hospitalization, Other)
  Sender: FDA-Public Use
  Company Number: FR-ABBOTT-04P-056-0282400-00

PATIENT
  Age: 45 Year
  Sex: Female
  Weight: 76 kg

DRUGS (9)
  1. HUMIRA [Suspect]
     Indication: POLYARTHRITIS
     Route: 058
     Dates: start: 20040330, end: 20040930
  2. HUMIRA [Suspect]
     Indication: JUVENILE ARTHRITIS
  3. METHOTREXATE [Suspect]
     Indication: POLYARTHRITIS
     Route: 048
     Dates: start: 20020501, end: 20040901
  4. METHOTREXATE [Suspect]
     Indication: JUVENILE ARTHRITIS
  5. PREDNISONE TAB [Suspect]
     Indication: JUVENILE ARTHRITIS
  6. LEFLUNOMIDE [Concomitant]
     Indication: DRUG USE FOR UNKNOWN INDICATION
     Route: 048
     Dates: start: 20001001, end: 20020501
  7. FOLIC ACID [Concomitant]
     Indication: DRUG USE FOR UNKNOWN INDICATION
  8. PAROXETINE HCL [Concomitant]
     Indication: DRUG USE FOR UNKNOWN INDICATION
  9. TRAMADOL HCL [Concomitant]
     Indication: DRUG USE FOR UNKNOWN INDICATION

REACTIONS (14)
  - ALANINE AMINOTRANSFERASE INCREASED [None]
  - ASTHENIA [None]
  - BACK PAIN [None]
  - CHOLESTASIS [None]
  - CYTOLYTIC HEPATITIS [None]
  - GENERAL PHYSICAL HEALTH DETERIORATION [None]
  - HALLUCINATIONS, MIXED [None]
  - HEPATOMEGALY [None]
  - HYPERTHERMIA [None]
  - HYPOGAMMAGLOBULINAEMIA [None]
  - INFLAMMATION [None]
  - LEGIONELLA INFECTION [None]
  - PNEUMONIA [None]
  - SEPSIS [None]
